FAERS Safety Report 9768407 (Version 1)
Quarter: 2013Q4

REPORT INFORMATION
  Report Type: Report from Study
  Country: AU (occurrence: AU)
  Receive Date: 20131217
  Receipt Date: 20131217
  Transmission Date: 20140711
  Serious: Yes (Other)
  Sender: FDA-Public Use
  Company Number: AU-B.I. PHARMACEUTICALS,INC./RIDGEFIELD-2013-BI-41284AU

PATIENT
  Sex: Male
  Weight: 59 kg

DRUGS (2)
  1. AFATINIB [Suspect]
     Indication: LUNG ADENOCARCINOMA STAGE IV
     Dosage: 50 MG
     Route: 048
     Dates: start: 20130506, end: 20130517
  2. AFATINIB [Suspect]
     Dosage: 30 MG
     Route: 048
     Dates: start: 20130518, end: 20130708

REACTIONS (2)
  - Malignant neoplasm progression [Unknown]
  - Mucosal inflammation [Unknown]
